FAERS Safety Report 11743671 (Version 2)
Quarter: 2015Q4

REPORT INFORMATION
  Report Type: Report from Study
  Country: CR (occurrence: CR)
  Receive Date: 20151116
  Receipt Date: 20151202
  Transmission Date: 20160304
  Serious: Yes (Other)
  Sender: FDA-Public Use
  Company Number: PHHY2015CR149082

PATIENT
  Age: 64 Year
  Sex: Male

DRUGS (1)
  1. SANDOSTATIN LAR DEPOT [Suspect]
     Active Substance: OCTREOTIDE ACETATE
     Indication: BRAIN NEOPLASM
     Dosage: 30 MG, QMO
     Route: 030

REACTIONS (12)
  - Hypoaesthesia [Unknown]
  - Brain neoplasm [Unknown]
  - Pyrexia [Unknown]
  - Tumour pain [Unknown]
  - Haematochezia [Unknown]
  - Off label use [Unknown]
  - Syncope [Unknown]
  - Vision blurred [Unknown]
  - Constipation [Unknown]
  - Oedema peripheral [Unknown]
  - Abdominal pain upper [Unknown]
  - Memory impairment [Unknown]
